FAERS Safety Report 18585293 (Version 1)
Quarter: 2020Q4

REPORT INFORMATION
  Report Type: Spontaneous
  Country: US (occurrence: US)
  Receive Date: 20201203
  Receipt Date: 20201203
  Transmission Date: 20210114
  Serious: No
  Sender: FDA-Public Use
  Company Number: None

PATIENT
  Age: 20 Year
  Sex: Female

DRUGS (1)
  1. ICATIBANT ACETATE SYR [Suspect]
     Active Substance: ICATIBANT ACETATE
     Indication: HEREDITARY ANGIOEDEMA
     Route: 058
     Dates: start: 20200815

REACTIONS (2)
  - Abdominal distension [None]
  - Eye swelling [None]

NARRATIVE: CASE EVENT DATE: 20201202
